FAERS Safety Report 6558153-5 (Version None)
Quarter: 2010Q1

REPORT INFORMATION
  Report Type: 
  Country: None (occurrence: None)
  Receive Date: 20100129
  Receipt Date: 20100127
  Transmission Date: 20100710
  Serious: Yes (Hospitalization)
  Sender: FDA-Public Use
  Company Number: R0001413A

PATIENT
  Sex: Male

DRUGS (4)
  1. BLINDED VACCINE [Suspect]
     Route: 030
     Dates: start: 20081014, end: 20081014
  2. WARFARIN SODIUM [Suspect]
     Indication: ATRIAL FIBRILLATION
     Dosage: 8MG PER DAY
     Route: 048
     Dates: start: 20000101
  3. DIGOXIN [Suspect]
     Indication: ATRIAL FIBRILLATION
     Dosage: 250MG PER DAY
     Route: 048
     Dates: start: 20000101, end: 20081120
  4. ATENOLOL [Concomitant]
     Indication: ATRIAL FIBRILLATION
     Dosage: 25MG PER DAY
     Route: 048
     Dates: start: 20000101, end: 20081120

REACTIONS (1)
  - THERAPEUTIC AGENT TOXICITY [None]
